FAERS Safety Report 5038333-0 (Version None)
Quarter: 2006Q2

REPORT INFORMATION
  Report Type: 
  Country: None (occurrence: None)
  Receive Date: 20060601
  Receipt Date: 20060123
  Transmission Date: 20061013
  Serious: No
  Sender: FDA-Public Use
  Company Number: 2006PV007531

PATIENT
  Age: 52 Year
  Sex: Male
  Weight: 117.9352 kg

DRUGS (7)
  1. BYETTA [Suspect]
     Indication: DIABETES MELLITUS NON-INSULIN-DEPENDENT
     Dosage: 5 MCG;BID;SC
     Route: 058
     Dates: start: 20060118
  2. METFORMIN [Concomitant]
  3. AVANDIA [Concomitant]
  4. LITHIUM CARBONATE [Concomitant]
  5. LEXAPRO [Concomitant]
  6. CYMBALTA [Concomitant]
  7. TRAZODONE HCL [Concomitant]

REACTIONS (5)
  - DECREASED APPETITE [None]
  - FATIGUE [None]
  - FEELING ABNORMAL [None]
  - MENTAL IMPAIRMENT [None]
  - SOMNOLENCE [None]
